FAERS Safety Report 4648405-8 (Version None)
Quarter: 2005Q2

REPORT INFORMATION
  Report Type: 
  Country: None (occurrence: None)
  Receive Date: 20050427
  Receipt Date: 20050422
  Transmission Date: 20051028
  Serious: Yes (Hospitalization)
  Sender: FDA-Public Use
  Company Number: THQ2005A00335

PATIENT
  Age: 70 Year
  Sex: Female

DRUGS (2)
  1. LANSOPRAZOLE [Suspect]
     Indication: OESOPHAGEAL DISORDER
     Dosage: 30 MG (30 MG, 1 IN 1 D) , PER ORAL
     Route: 048
     Dates: start: 20030316, end: 20051119
  2. PANAMAX (PARACETAMOL) (TABLETS) [Concomitant]

REACTIONS (2)
  - DYSPNOEA EXERTIONAL [None]
  - VENTRICULAR DYSFUNCTION [None]
